FAERS Safety Report 6032160-3 (Version None)
Quarter: 2009Q1

REPORT INFORMATION
  Report Type: 
  Country: None (occurrence: None)
  Receive Date: 20090107
  Receipt Date: 20081226
  Transmission Date: 20090719
  Serious: No
  Sender: FDA-Public Use
  Company Number: 2008JP005708

PATIENT

DRUGS (1)
  1. PROTOPIC [Suspect]
     Dosage: UNK, UNK, TOPICAL
     Route: 061

REACTIONS (3)
  - LYMPHADENOPATHY [None]
  - LYMPHOMA [None]
  - SUBCUTANEOUS NODULE [None]
